FAERS Safety Report 9659696 (Version 3)
Quarter: 2014Q1

REPORT INFORMATION
  Report Type: Spontaneous
  Country: SG (occurrence: SG)
  Receive Date: 20131031
  Receipt Date: 20140312
  Transmission Date: 20141002
  Serious: Yes (Hospitalization)
  Sender: FDA-Public Use
  Company Number: SG-JNJFOC-20131012011

PATIENT
  Age: 22 Year
  Sex: Male
  Weight: 85 kg

DRUGS (5)
  1. REMICADE [Suspect]
     Indication: HIDRADENITIS
     Dosage: 5 MG/KG FOR ONE DAY.
     Route: 042
     Dates: start: 20131003
  2. REMICADE [Suspect]
     Indication: HIDRADENITIS
     Route: 042
     Dates: start: 20131014
  3. AUGMENTIN [Concomitant]
     Route: 065
  4. AUGMENTIN [Concomitant]
     Route: 065
     Dates: start: 20130919, end: 20131009
  5. CIPROFLOXACIN [Concomitant]
     Route: 065
     Dates: start: 20130919

REACTIONS (5)
  - Hidradenitis [Recovering/Resolving]
  - Off label use [Recovered/Resolved]
  - Vomiting [Unknown]
  - Dizziness [Unknown]
  - Oropharyngeal pain [Unknown]
